FAERS Safety Report 14010949 (Version 1)
Quarter: 2017Q3

REPORT INFORMATION
  Report Type: Spontaneous
  Country: US (occurrence: US)
  Receive Date: 20170925
  Receipt Date: 20170925
  Transmission Date: 20171128
  Serious: Yes (Hospitalization, Other)
  Sender: FDA-Public Use
  Company Number: None

PATIENT
  Age: 26 Year
  Sex: Female
  Weight: 100 kg

DRUGS (7)
  1. CEFTAROLINE [Suspect]
     Active Substance: CEFTAROLINE
     Indication: ENDOCARDITIS STAPHYLOCOCCAL
     Route: 041
     Dates: start: 20170826, end: 20170915
  2. METRONIDAZOLE. [Concomitant]
     Active Substance: METRONIDAZOLE
  3. FAMOTIDINE. [Concomitant]
     Active Substance: FAMOTIDINE
  4. DAPTOMYCIN. [Concomitant]
     Active Substance: DAPTOMYCIN
  5. RIFAMPIN. [Concomitant]
     Active Substance: RIFAMPIN
  6. VANCOMYCIN [Concomitant]
     Active Substance: VANCOMYCIN
  7. BUMETANIDE. [Concomitant]
     Active Substance: BUMETANIDE

REACTIONS (1)
  - Neutropenia [None]

NARRATIVE: CASE EVENT DATE: 20170915
